FAERS Safety Report 21660912 (Version 1)
Quarter: 2022Q4

REPORT INFORMATION
  Report Type: Spontaneous
  Country: DE (occurrence: DE)
  Receive Date: 20221130
  Receipt Date: 20221130
  Transmission Date: 20230113
  Serious: Yes (Other)
  Sender: FDA-Public Use
  Company Number: DE-MODERNATX, INC.-MOD-2022-479602

PATIENT
  Age: 59 Year
  Sex: Female

DRUGS (2)
  1. OCREVUS [Suspect]
     Active Substance: OCRELIZUMAB
     Indication: Primary progressive multiple sclerosis
     Dosage: 600 MILLIGRAM (438 DAYS)
     Route: 065
     Dates: start: 20180412, end: 20220920
  2. NABIXIMOLS [Concomitant]
     Active Substance: NABIXIMOLS
     Indication: Product used for unknown indication

REACTIONS (12)
  - Incorrect dose administered [Unknown]
  - Hyperhidrosis [Recovered/Resolved]
  - Insomnia [Not Recovered/Not Resolved]
  - Pain [Recovered/Resolved]
  - Pyrexia [Recovered/Resolved]
  - Interchange of vaccine products [Unknown]
  - Leukaemia monocytic [Not Recovered/Not Resolved]
  - Overdose [Unknown]
  - Myalgia [Recovered/Resolved]
  - COVID-19 immunisation [Unknown]
  - Headache [Recovered/Resolved]
  - Chills [Recovered/Resolved]

NARRATIVE: CASE EVENT DATE: 20220110
